FAERS Safety Report 5183665-9 (Version None)
Quarter: 2006Q4

REPORT INFORMATION
  Report Type: 
  Country: None (occurrence: None)
  Receive Date: 20061220
  Receipt Date: 20060127
  Transmission Date: 20070319
  Serious: No
  Sender: FDA-Public Use
  Company Number: US-GLAXOSMITHKLINE-A0591217A

PATIENT
  Age: 67 Year
  Sex: Male

DRUGS (6)
  1. NICODERM CQ [Suspect]
     Dates: end: 20060127
  2. PREDNISONE TAB [Concomitant]
  3. PLAVIX [Concomitant]
  4. DETROL [Concomitant]
  5. ZOLOFT [Concomitant]
  6. ANTIBIOTIC [Concomitant]

REACTIONS (2)
  - PRURITUS [None]
  - RASH [None]
